FAERS Safety Report 8557994-2 (Version None)
Quarter: 2012Q3

REPORT INFORMATION
  Report Type: 
  Country: None (occurrence: None)
  Receive Date: 20120801
  Receipt Date: 20120727
  Transmission Date: 20120928
  Serious: Yes (Death)
  Sender: FDA-Public Use
  Company Number: US-ASTRAZENECA-2012SE53683

PATIENT
  Age: 79 Year
  Sex: Male

DRUGS (12)
  1. SINGULAIR [Concomitant]
     Route: 048
  2. SYNTHROID [Concomitant]
     Route: 048
  3. CAPRELSA [Suspect]
     Indication: THYROID CANCER
     Route: 048
  4. ASPIRIN [Concomitant]
     Route: 048
  5. PAROXETINE HCL [Concomitant]
     Route: 048
  6. SYMBICORT [Concomitant]
     Dosage: 80/4.5 MCG UNKNOWN FREQUENCY
     Route: 055
  7. FENTANYL CITRATE [Concomitant]
  8. METFORMIN HCL [Concomitant]
     Route: 048
  9. UROXATRAL [Concomitant]
     Route: 048
  10. DIGOXIN [Concomitant]
     Route: 048
  11. OMEPRAZOLE [Concomitant]
     Route: 048
  12. SIMVASTATIN [Concomitant]
     Route: 048

REACTIONS (1)
  - CARDIAC FAILURE CONGESTIVE [None]
